FAERS Safety Report 5403729-1 (Version None)
Quarter: 2007Q3

REPORT INFORMATION
  Report Type: 
  Country: None (occurrence: None)
  Receive Date: 20070802
  Receipt Date: 20070725
  Transmission Date: 20080115
  Serious: Yes (Life-Threatening)
  Sender: FDA-Public Use
  Company Number: JP-JNJFOC-20070704551

PATIENT
  Sex: Female
  Weight: 44 kg

DRUGS (10)
  1. ITRACONAZOLE [Suspect]
     Route: 065
  2. ITRACONAZOLE [Suspect]
     Indication: PULMONARY MYCOSIS
     Route: 065
  3. VANCOMYCIN HYDROCHLORIDE [Concomitant]
     Route: 042
  4. HEPARIN SODIUM [Concomitant]
     Route: 042
  5. OMEPRAZOLE SODIUM [Concomitant]
     Route: 042
  6. SOLITA-T NO.4 [Concomitant]
     Route: 042
  7. FENTANYL CITRATE [Concomitant]
     Route: 042
  8. PROPOFOL [Concomitant]
     Route: 042
  9. TPN [Concomitant]
     Route: 048
  10. FLUID DIET [Concomitant]
     Route: 048

REACTIONS (1)
  - ATRIOVENTRICULAR BLOCK COMPLETE [None]
